FAERS Safety Report 4558359-0 (Version None)
Quarter: 2005Q1

REPORT INFORMATION
  Report Type: 
  Country: None (occurrence: None)
  Receive Date: 20050103
  Receipt Date: 20041012
  Transmission Date: 20050727
  Serious: Yes (Other)
  Sender: FDA-Public Use
  Company Number: 2004UW21258

PATIENT
  Age: 59 Year
  Sex: Female
  Weight: 72.574 kg

DRUGS (4)
  1. CRESTOR [Suspect]
     Indication: BLOOD CHOLESTEROL INCREASED
     Dosage: 10 MG
     Dates: start: 20041001
  2. ASPIRIN [Concomitant]
  3. MULTIVITAMIN [Concomitant]
  4. CALTRATE + D [Concomitant]

REACTIONS (4)
  - ALOPECIA [None]
  - ANXIETY [None]
  - CHEST DISCOMFORT [None]
  - STRESS [None]
